FAERS Safety Report 13001731 (Version 1)
Quarter: 2016Q4

REPORT INFORMATION
  Report Type: Spontaneous
  Country: US (occurrence: US)
  Receive Date: 20161206
  Receipt Date: 20161206
  Transmission Date: 20170207
  Serious: No
  Sender: FDA-Public Use
  Company Number: US-MYLANLABS-2016M1046661

PATIENT
  Age: 76 Year
  Sex: Female

DRUGS (2)
  1. LIDOCAINE PATCH [Suspect]
     Active Substance: LIDOCAINE
     Indication: PAIN
     Dosage: 1-3 DF, QD, 12HRS ON, 12HRS OFF
     Route: 003
     Dates: start: 201610
  2. LIDOCAINE PATCH [Suspect]
     Active Substance: LIDOCAINE
     Dosage: 1-3 DF, QD, 12HRS ON, 12HRS OFF
     Route: 003
     Dates: start: 201610

REACTIONS (3)
  - Product quality issue [Not Recovered/Not Resolved]
  - Product adhesion issue [Not Recovered/Not Resolved]
  - Drug ineffective for unapproved indication [Not Recovered/Not Resolved]

NARRATIVE: CASE EVENT DATE: 201610
